FAERS Safety Report 7048408-2 (Version None)
Quarter: 2010Q4

REPORT INFORMATION
  Report Type: 
  Country: None (occurrence: None)
  Receive Date: 20101014
  Receipt Date: 20101014
  Transmission Date: 20110411
  Serious: No
  Sender: FDA-Public Use
  Company Number: None

PATIENT
  Age: 49 Year
  Sex: Male
  Weight: 77.1115 kg

DRUGS (1)
  1. OXYCONTIN [Suspect]
     Indication: SPINAL OSTEOARTHRITIS
     Dosage: 10MG 1BID PO
     Route: 048

REACTIONS (4)
  - DRUG EFFECT DECREASED [None]
  - NAUSEA [None]
  - PRODUCT QUALITY ISSUE [None]
  - SOMNOLENCE [None]
